FAERS Safety Report 5843701-0 (Version None)
Quarter: 2008Q3

REPORT INFORMATION
  Report Type: 
  Country: None (occurrence: None)
  Receive Date: 20080813
  Receipt Date: 20080416
  Transmission Date: 20090109
  Serious: Yes (Other)
  Sender: FDA-Public Use
  Company Number: US-BRISTOL-MYERS SQUIBB COMPANY-14063176

PATIENT
  Age: 79 Year
  Sex: Female

DRUGS (4)
  1. IXEMPRA KIT [Suspect]
     Indication: BREAST CANCER STAGE IV
     Dosage: INITIAL DOSAGE ON 11-JAN-2008 RECEIVING 2 WEEKS ON/1 WEEK OFF. IXEMPRA GIVEN 3 HRS
     Route: 042
     Dates: start: 20080404
  2. DECADRON SRC [Concomitant]
     Indication: PREMEDICATION
     Route: 042
  3. ZANTAC [Concomitant]
     Indication: PREMEDICATION
  4. BENADRYL [Concomitant]
     Indication: PREMEDICATION
     Route: 042

REACTIONS (1)
  - HYPERSENSITIVITY [None]
